FAERS Safety Report 6500316-9 (Version None)
Quarter: 2009Q4

REPORT INFORMATION
  Report Type: 
  Country: None (occurrence: None)
  Receive Date: 20091216
  Receipt Date: 20091207
  Transmission Date: 20100525
  Serious: Yes (Other)
  Sender: FDA-Public Use
  Company Number: FI-ROCHE-674298

PATIENT
  Sex: Male

DRUGS (1)
  1. ISOTRETINOIN [Suspect]
     Indication: ACNE
     Dosage: MOST COMMON DOSAGE REGIMEN USED: 0.5 MG/KG/DAY
     Route: 065

REACTIONS (2)
  - DEPRESSIVE SYMPTOM [None]
  - SUICIDAL IDEATION [None]
